FAERS Safety Report 15277348 (Version 1)
Quarter: 2018Q3

REPORT INFORMATION
  Report Type: Spontaneous
  Country: DE (occurrence: DE)
  Receive Date: 20180814
  Receipt Date: 20180814
  Transmission Date: 20181010
  Serious: Yes (Hospitalization)
  Sender: FDA-Public Use
  Company Number: DE-B. BRAUN MEDICAL INC.-2053726

PATIENT
  Age: 79 Year
  Sex: Male

DRUGS (14)
  1. SIMVASTATIN. [Concomitant]
     Active Substance: SIMVASTATIN
  2. SPIRIVA [Concomitant]
     Active Substance: TIOTROPIUM BROMIDE MONOHYDRATE
  3. METOPROLOL. [Concomitant]
     Active Substance: METOPROLOL
  4. TAMSULOSIN [Concomitant]
     Active Substance: TAMSULOSIN
  5. ASS 100 [Suspect]
     Active Substance: ASPIRIN
  6. NEPRESOL [Concomitant]
  7. VALSARTAN. [Concomitant]
     Active Substance: VALSARTAN
  8. HEPARIN SODIUM IN DEXTROSE [Suspect]
     Active Substance: HEPARIN SODIUM
  9. LERCANIDIPIN [Concomitant]
     Active Substance: LERCANIDIPINE
  10. BERLINSULIN H 30/70 [Concomitant]
  11. BICANORM [Concomitant]
     Active Substance: SODIUM BICARBONATE
  12. DEKRISTOL [Concomitant]
     Active Substance: CHOLECALCIFEROL
  13. FUROSEMIDE. [Concomitant]
     Active Substance: FUROSEMIDE
  14. XIPAMID [Concomitant]
     Active Substance: XIPAMIDE

REACTIONS (1)
  - Internal haemorrhage [Unknown]

NARRATIVE: CASE EVENT DATE: 20160824
